FAERS Safety Report 15875673 (Version 1)
Quarter: 2019Q1

REPORT INFORMATION
  Report Type: Other
  Country: US (occurrence: US)
  Receive Date: 20190126
  Receipt Date: 20190126
  Transmission Date: 20190417
  Serious: No
  Sender: FDA-Public Use
  Company Number: US-ACORDA-ACO_154859_2018

PATIENT
  Sex: Male

DRUGS (4)
  1. AMPYRA [Suspect]
     Active Substance: DALFAMPRIDINE
     Indication: SPEECH DISORDER
  2. AMPYRA [Suspect]
     Active Substance: DALFAMPRIDINE
     Indication: MULTIPLE SCLEROSIS
     Dosage: 10 MILLIGRAM, BID
     Route: 048
     Dates: start: 20180822, end: 20181015
  3. AMPYRA [Suspect]
     Active Substance: DALFAMPRIDINE
     Indication: FALL
  4. AMPYRA [Suspect]
     Active Substance: DALFAMPRIDINE
     Indication: BLADDER DISORDER

REACTIONS (2)
  - Therapy cessation [Unknown]
  - Off label use [Unknown]
